FAERS Safety Report 22937561 (Version 3)
Quarter: 2024Q4

REPORT INFORMATION
  Report Type: Spontaneous
  Country: US (occurrence: US)
  Receive Date: 20230913
  Receipt Date: 20241209
  Transmission Date: 20250115
  Serious: Yes (Disabling, Other)
  Sender: SANDOZ
  Company Number: US-SANDOZ-NVSC2023US011362

PATIENT
  Age: 60 Year
  Sex: Female

DRUGS (5)
  1. RECLAST [Suspect]
     Active Substance: ZOLEDRONIC ACID
     Indication: Osteoporosis
     Dosage: 5MG/100 ML, Q12MO
     Route: 042
     Dates: start: 20230112
  2. ADVIL [Concomitant]
     Active Substance: IBUPROFEN
     Indication: Product used for unknown indication
     Dosage: UNK
     Route: 065
     Dates: start: 20230112
  3. DICLOFENAC SODIUM [Concomitant]
     Active Substance: DICLOFENAC SODIUM
     Indication: Product used for unknown indication
     Dosage: UNK
     Route: 065
     Dates: start: 20230112
  4. LEVOTHYROXINE [Concomitant]
     Active Substance: LEVOTHYROXINE
     Indication: Product used for unknown indication
     Dosage: UNK
     Route: 065
  5. PREDNISONE [Concomitant]
     Active Substance: PREDNISONE
     Indication: Product used for unknown indication
     Route: 065

REACTIONS (30)
  - Polyarthritis [Recovering/Resolving]
  - Feeling abnormal [Recovered/Resolved]
  - Swelling [Recovered/Resolved]
  - Ocular hyperaemia [Recovered/Resolved]
  - Eye swelling [Recovered/Resolved]
  - Inflammation [Recovered/Resolved]
  - Myositis [Unknown]
  - Pancreatitis [Unknown]
  - Autoimmune myositis [Unknown]
  - Autoimmune disorder [Not Recovered/Not Resolved]
  - Insomnia [Recovered/Resolved]
  - Musculoskeletal chest pain [Unknown]
  - Abdominal pain [Recovered/Resolved]
  - Pain [Recovered/Resolved]
  - Headache [Recovered/Resolved]
  - Nausea [Recovered/Resolved]
  - Arthralgia [Recovered/Resolved]
  - Lymph node pain [Unknown]
  - Gastrointestinal disorder [Unknown]
  - Hypokinesia [Unknown]
  - Bone density abnormal [Unknown]
  - Muscle atrophy [Unknown]
  - Exercise tolerance decreased [Unknown]
  - Feeding disorder [Unknown]
  - Joint swelling [Unknown]
  - Arthritis [Unknown]
  - Neck pain [Unknown]
  - Back pain [Unknown]
  - Myalgia [Unknown]
  - Anxiety [Unknown]

NARRATIVE: CASE EVENT DATE: 20230113
